FAERS Safety Report 5378021-4 (Version None)
Quarter: 2007Q2

REPORT INFORMATION
  Report Type: 
  Country: None (occurrence: None)
  Receive Date: 20070629
  Receipt Date: 20070619
  Transmission Date: 20071010
  Serious: No
  Sender: FDA-Public Use
  Company Number: 26751

PATIENT
  Sex: Male

DRUGS (1)
  1. NIASPAN [Suspect]
     Dosage: 7 G DAILY PO
     Route: 048

REACTIONS (3)
  - ACCIDENTAL OVERDOSE [None]
  - MEDICATION ERROR [None]
  - WRONG DRUG ADMINISTERED [None]
